FAERS Safety Report 7287193-6 (Version None)
Quarter: 2010Q4

REPORT INFORMATION
  Report Type: 
  Country: None (occurrence: None)
  Receive Date: 20101222
  Receipt Date: 20101028
  Transmission Date: 20110411
  Serious: Yes (Hospitalization)
  Sender: FDA-Public Use
  Company Number: UTC-001853

PATIENT
  Age: 60 Year
  Sex: Female

DRUGS (4)
  1. TYVASO [Suspect]
     Indication: COR PULMONALE CHRONIC
     Dosage: 168 MCG (42 MCG, 4 IN 1 D), INHALATION
     Route: 055
     Dates: start: 20100505
  2. MORPHINE [Suspect]
  3. OXYCODONE HCL [Suspect]
  4. TRACLEER [Concomitant]

REACTIONS (2)
  - PAIN IN EXTREMITY [None]
  - RESPIRATORY FAILURE [None]
